FAERS Safety Report 5369569-7 (Version None)
Quarter: 2007Q2

REPORT INFORMATION
  Report Type: 
  Country: None (occurrence: None)
  Receive Date: 20070621
  Receipt Date: 20070604
  Transmission Date: 20071010
  Serious: Yes (Other)
  Sender: FDA-Public Use
  Company Number: US200706000602

PATIENT
  Age: 45 Year
  Sex: Male

DRUGS (2)
  1. HUMALOG MIX 50/50 [Suspect]
     Indication: DIABETES MELLITUS
     Dosage: 120 U, 2/D
     Dates: start: 20060101
  2. HUMULIN 70/30 [Suspect]
     Dates: end: 20060101

REACTIONS (4)
  - BLINDNESS [None]
  - BLOOD GLUCOSE INCREASED [None]
  - INSULIN RESISTANCE [None]
  - PHARMACEUTICAL PRODUCT COMPLAINT [None]
